FAERS Safety Report 5893887-7 (Version None)
Quarter: 2008Q3

REPORT INFORMATION
  Report Type: 
  Country: None (occurrence: None)
  Receive Date: 20080923
  Receipt Date: 20071129
  Transmission Date: 20090109
  Serious: No
  Sender: FDA-Public Use
  Company Number: US-ASTRAZENECA-2007UW27353

PATIENT
  Age: 444 Month
  Sex: Male
  Weight: 83.9 kg

DRUGS (5)
  1. SEROQUEL [Suspect]
     Indication: BIPOLAR DISORDER
     Route: 048
     Dates: start: 20071101
  2. SEROQUEL [Suspect]
     Route: 048
     Dates: start: 20071210
  3. BUSPAR [Concomitant]
  4. ZOLOFT [Concomitant]
  5. FLEXERIL [Concomitant]

REACTIONS (6)
  - AGITATION [None]
  - FEELING JITTERY [None]
  - GAIT DISTURBANCE [None]
  - ILLUSION [None]
  - MALAISE [None]
  - SOMNOLENCE [None]
